FAERS Safety Report 25707927 (Version 3)
Quarter: 2025Q3

REPORT INFORMATION
  Report Type: Report from Study
  Country: GB (occurrence: GB)
  Receive Date: 20250820
  Receipt Date: 20250912
  Transmission Date: 20251021
  Serious: Yes (Hospitalization, Disabling, Other)
  Sender: NOVARTIS
  Company Number: GB-002147023-NVSC2025GB126844

PATIENT
  Age: 73 Year
  Sex: Female

DRUGS (2)
  1. KISQALI [Suspect]
     Active Substance: RIBOCICLIB SUCCINATE
     Indication: Breast cancer metastatic
     Route: 048
  2. KISQALI [Suspect]
     Active Substance: RIBOCICLIB SUCCINATE
     Indication: Breast cancer
     Route: 048

REACTIONS (10)
  - Hypotension [Unknown]
  - Malaise [Unknown]
  - Tremor [Unknown]
  - Eye disorder [Unknown]
  - Spinal fracture [Unknown]
  - Asthenia [Unknown]
  - Rash [Unknown]
  - Pruritus [Unknown]
  - Back pain [Unknown]
  - Fall [Unknown]
